FAERS Safety Report 6066737-6 (Version None)
Quarter: 2009Q1

REPORT INFORMATION
  Report Type: 
  Country: None (occurrence: None)
  Receive Date: 20090205
  Receipt Date: 20080413
  Transmission Date: 20090719
  Serious: No
  Sender: FDA-Public Use
  Company Number: US-ABBOTT-08P-163-0447207-00

PATIENT
  Sex: Male

DRUGS (4)
  1. VICODIN [Suspect]
     Indication: ANALGESIA
     Dosage: TOTAL THREE TABLETS ON SEPERATE OCCASSIONS
     Route: 048
     Dates: start: 20080301
  2. PREDNISONE [Concomitant]
     Indication: DRUG USE FOR UNKNOWN INDICATION
  3. ALENDRONATE SODIUM [Concomitant]
     Indication: DRUG USE FOR UNKNOWN INDICATION
  4. HUMIRA [Concomitant]
     Indication: CROHN'S DISEASE
     Route: 058
     Dates: start: 20080116

REACTIONS (1)
  - DRUG INEFFECTIVE [None]
